FAERS Safety Report 18575983 (Version 2)
Quarter: 2021Q1

REPORT INFORMATION
  Report Type: Report from Study
  Country: US (occurrence: US)
  Receive Date: 20201203
  Receipt Date: 20210104
  Transmission Date: 20210419
  Serious: Yes (Hospitalization, Other)
  Sender: FDA-Public Use
  Company Number: US-TAKEDA-US201935391

PATIENT
  Age: 72 Year
  Sex: Female

DRUGS (1)
  1. GAMMAGARD LIQUID [Suspect]
     Active Substance: HUMAN IMMUNOGLOBULIN G
     Indication: IMMUNODEFICIENCY COMMON VARIABLE
     Dosage: 22 GRAM, Q2WEEKS
     Route: 065

REACTIONS (4)
  - Spinal stenosis [Unknown]
  - COVID-19 [Recovering/Resolving]
  - Psoriasis [Unknown]
  - Dislocation of vertebra [Unknown]

NARRATIVE: CASE EVENT DATE: 20201125
